FAERS Safety Report 4876369-0 (Version None)
Quarter: 2005Q4

REPORT INFORMATION
  Report Type: 
  Country: None (occurrence: None)
  Receive Date: 20051206
  Receipt Date: 20051013
  Transmission Date: 20060501
  Serious: No
  Sender: FDA-Public Use
  Company Number: USA 0510110846

PATIENT
  Age: 56 Year
  Sex: Female

DRUGS (5)
  1. CYMBALTA [Suspect]
     Indication: DEPRESSION
     Dosage: 60 MG
     Dates: start: 20040101
  2. AMBIEN [Concomitant]
  3. CONCERTA [Concomitant]
  4. KLONOPIN [Concomitant]
  5. VICODIN [Concomitant]

REACTIONS (4)
  - CARTILAGE INJURY [None]
  - CYST [None]
  - FEELING ABNORMAL [None]
  - IRRITABLE BOWEL SYNDROME [None]
